FAERS Safety Report 4522179-3 (Version None)
Quarter: 2004Q4

REPORT INFORMATION
  Report Type: 
  Country: None (occurrence: None)
  Receive Date: 20041207
  Receipt Date: 20041124
  Transmission Date: 20050328
  Serious: Yes (Hospitalization, Other)
  Sender: FDA-Public Use
  Company Number: 2004098814

PATIENT
  Sex: Male
  Weight: 106.1417 kg

DRUGS (12)
  1. LIPITOR [Suspect]
     Indication: BLOOD CHOLESTEROL
     Dosage: 80 MG (80 MG, 1 IN 1 D)
  2. NEURONTIN [Suspect]
     Indication: NERVE INJURY
     Dosage: 900 MG (300 MG, 3 IN 1 D)
  3. ZOLOFT [Suspect]
     Indication: NERVOUSNESS
     Dosage: 20 MG (20 MG, 1 IN 1 D)
  4. CLOPIDOGREL BISULFATE [Concomitant]
  5. OMEPRAZOLE [Concomitant]
  6. METOPROLOL TARTRATE [Concomitant]
  7. TEMAZEPAM [Concomitant]
  8. ASPIRIN [Concomitant]
  9. POTASSIUM CHLORIDE [Concomitant]
  10. METHOCARBAMOL [Concomitant]
  11. LEVOTHYROXINE SODIUM [Concomitant]
  12. DYAZIDE [Concomitant]

REACTIONS (15)
  - ANXIETY [None]
  - BURNING SENSATION [None]
  - CHEST PAIN [None]
  - DIFFICULTY IN WALKING [None]
  - DRUG INEFFECTIVE [None]
  - DRY MOUTH [None]
  - FEELING ABNORMAL [None]
  - HYPOAESTHESIA [None]
  - MUSCLE TWITCHING [None]
  - MYOCARDIAL INFARCTION [None]
  - NERVE INJURY [None]
  - PARAESTHESIA [None]
  - PSYCHOMOTOR HYPERACTIVITY [None]
  - SLEEP DISORDER [None]
  - STENT OCCLUSION [None]
